FAERS Safety Report 11290341 (Version 1)
Quarter: 2015Q3

REPORT INFORMATION
  Report Type: Report from Study
  Country: MX (occurrence: MX)
  Receive Date: 20150722
  Receipt Date: 20150722
  Transmission Date: 20151125
  Serious: Yes (Death, Hospitalization, Other)
  Sender: FDA-Public Use
  Company Number: MX-AMGEN-MEXSP2014075484

PATIENT
  Age: 79 Year
  Sex: Male
  Weight: 58 kg

DRUGS (10)
  1. TRADJENTA [Concomitant]
     Active Substance: LINAGLIPTIN
     Dosage: 5 MG, UNK
  2. CRESTOR [Concomitant]
     Active Substance: ROSUVASTATIN CALCIUM
     Dosage: 40 MG, UNK
  3. ARANESP [Suspect]
     Active Substance: DARBEPOETIN ALFA
     Indication: HAEMOGLOBIN DECREASED
     Dosage: UNK
     Route: 065
     Dates: start: 20140909, end: 20140930
  4. ARANESP [Suspect]
     Active Substance: DARBEPOETIN ALFA
     Indication: NEPHROGENIC ANAEMIA
  5. ZANIDIP [Concomitant]
     Active Substance: LERCANIDIPINE HYDROCHLORIDE
     Dosage: 20 MG, UNK
  6. DILATREND [Concomitant]
     Active Substance: CARVEDILOL
     Dosage: 625 MG, UNK
  7. ZYLOPRIM [Concomitant]
     Active Substance: ALLOPURINOL
     Dosage: 300 MG, UNK
  8. RENAGEL [Concomitant]
     Active Substance: SEVELAMER HYDROCHLORIDE
     Dosage: 800 MG, UNK
  9. ROCALTROL [Concomitant]
     Active Substance: CALCITRIOL
     Dosage: 0.25 MG, UNK
  10. INSULIN N [Concomitant]

REACTIONS (5)
  - Hepatic cancer [Unknown]
  - Prostate cancer [Unknown]
  - Prostatic abscess [Unknown]
  - Prostatitis [Unknown]
  - Cholangiocarcinoma [Fatal]

NARRATIVE: CASE EVENT DATE: 20140910
